FAERS Safety Report 10505255 (Version 6)
Quarter: 2016Q2

REPORT INFORMATION
  Report Type: Spontaneous
  Country: US (occurrence: US)
  Receive Date: 20141008
  Receipt Date: 20160427
  Transmission Date: 20160815
  Serious: Yes (Other)
  Sender: FDA-Public Use
  Company Number: US-BAYER-2014-144769

PATIENT
  Age: 38 Year
  Sex: Male

DRUGS (1)
  1. CIPRO [Suspect]
     Active Substance: CIPROFLOXACIN HYDROCHLORIDE
     Indication: PROSTATITIS
     Dosage: UNK
     Dates: start: 2012, end: 2013

REACTIONS (19)
  - Tendonitis [None]
  - Chills [None]
  - Malaise [None]
  - Emotional disorder [None]
  - Activities of daily living impaired [None]
  - Loss of employment [None]
  - Heart rate increased [None]
  - Tendon pain [None]
  - Bone pain [None]
  - Fatigue [None]
  - Somnolence [None]
  - Pain in extremity [None]
  - Fear [None]
  - Incorrect drug administration duration [None]
  - General physical health deterioration [None]
  - Fibromyalgia [None]
  - Depressed mood [None]
  - Mobility decreased [None]
  - Pain [None]
